FAERS Safety Report 19933053 (Version 3)
Quarter: 2022Q3

REPORT INFORMATION
  Report Type: Report from Study
  Country: US (occurrence: US)
  Receive Date: 20211008
  Receipt Date: 20220822
  Transmission Date: 20221027
  Serious: Yes (Hospitalization, Other)
  Sender: FDA-Public Use
  Company Number: US-MYLANLABS-2021M1065275

PATIENT
  Sex: Female
  Weight: 48 kg

DRUGS (3)
  1. GLATIRAMER ACETATE [Suspect]
     Active Substance: GLATIRAMER ACETATE
     Indication: Secondary progressive multiple sclerosis
     Dosage: 40 MILLIGRAM, 3XW, 3 TIMES WEEKLY
     Route: 058
     Dates: start: 202109
  2. DEVICE [Suspect]
     Active Substance: DEVICE
     Indication: Secondary progressive multiple sclerosis
     Dosage: 40 MILLIGRAM, 3XW
  3. PLAVIX [Concomitant]
     Active Substance: CLOPIDOGREL BISULFATE
     Dosage: UNK

REACTIONS (12)
  - Hospitalisation [Recovered/Resolved]
  - Multiple sclerosis relapse [Unknown]
  - JC virus infection [Unknown]
  - Injury associated with device [Unknown]
  - Fatigue [Unknown]
  - Injection site erythema [Unknown]
  - Injection site haemorrhage [Unknown]
  - Injection site pain [Unknown]
  - Device issue [Unknown]
  - Device difficult to use [Unknown]
  - Needle issue [Unknown]
  - Incorrect dose administered [Unknown]
